FAERS Safety Report 4957850-2 (Version None)
Quarter: 2006Q1

REPORT INFORMATION
  Report Type: 
  Country: None (occurrence: None)
  Receive Date: 20060324
  Receipt Date: 20060324
  Transmission Date: 20060701
  Serious: No
  Sender: FDA-Public Use
  Company Number: None

PATIENT
  Sex: Male
  Weight: 83.4619 kg

DRUGS (18)
  1. FENOFIBRATE [Suspect]
     Indication: HYPERLIPIDAEMIA
     Dosage: 1 TAB DAILY PO
     Route: 048
     Dates: start: 20050721, end: 20051214
  2. PRAVASTATIN [Suspect]
     Indication: HYPERLIPIDAEMIA
     Dosage: 1 TAB DAILY PO
     Route: 048
     Dates: start: 20010816, end: 20051214
  3. ALLOPURINOL [Concomitant]
  4. ALPROSTADIL [Concomitant]
  5. ASPIRIN [Concomitant]
  6. ATENOLOL [Concomitant]
  7. BUPROPION HCL [Concomitant]
  8. CARBOXYMETHYL CELLULOSE [Concomitant]
  9. CLOPIDOGREL [Concomitant]
  10. DRONABINOL [Concomitant]
  11. FELODIPINE SA [Concomitant]
  12. ISDN [Concomitant]
  13. LAMIVUDINE [Concomitant]
  14. LISINOPRIL [Concomitant]
  15. NEVIRAPINE [Concomitant]
  16. NITROGLYCERIN [Concomitant]
  17. OMEPRAZOLE SA [Concomitant]
  18. RANITADINE [Concomitant]

REACTIONS (1)
  - RHABDOMYOLYSIS [None]
